FAERS Safety Report 9061384 (Version 1)
Quarter: 2013Q1

REPORT INFORMATION
  Report Type: Spontaneous
  Country: US (occurrence: US)
  Receive Date: 20130204
  Receipt Date: 20130204
  Transmission Date: 20140127
  Serious: Yes (Hospitalization, Other)
  Sender: FDA-Public Use
  Company Number: US-COVIDIEN/TYCO HEALTHCARE/MALLINCKRODT-T201204561

PATIENT
  Age: 65 None
  Sex: Female

DRUGS (4)
  1. GABLOFEN [Suspect]
     Indication: MUSCLE SPASTICITY
     Dosage: 199 MCG/DAY
     Route: 037
     Dates: start: 20120608
  2. GABLOFEN [Suspect]
     Dosage: 900 MCG/DAY
     Route: 037
     Dates: end: 20120608
  3. VALIUM                             /00017001/ [Suspect]
     Indication: CONFUSIONAL STATE
     Dosage: UNK
     Dates: start: 201206, end: 201206
  4. VALIUM                             /00017001/ [Suspect]
     Indication: DELUSION

REACTIONS (14)
  - Withdrawal syndrome [Recovered/Resolved]
  - Delusion [Unknown]
  - Blood potassium abnormal [Recovered/Resolved]
  - Blood electrolytes abnormal [Recovered/Resolved]
  - Post-traumatic stress disorder [Not Recovered/Not Resolved]
  - Muscle spasms [Recovered/Resolved]
  - Hallucination [Unknown]
  - Confusional state [Unknown]
  - Dehydration [Unknown]
  - Thinking abnormal [Unknown]
  - Pain [Recovered/Resolved]
  - Depressed mood [Not Recovered/Not Resolved]
  - Crying [Not Recovered/Not Resolved]
  - Device failure [Recovered/Resolved]
